FAERS Safety Report 4722898-X (Version None)
Quarter: 2005Q3

REPORT INFORMATION
  Report Type: 
  Country: None (occurrence: None)
  Receive Date: 20050722
  Receipt Date: 20050513
  Transmission Date: 20060218
  Serious: Yes (Death, Hospitalization)
  Sender: FDA-Public Use
  Company Number: FR-ABBOTT-05P-056-0300529-00

PATIENT
  Sex: Female

DRUGS (6)
  1. MICROPAKINE [Suspect]
     Indication: MYOCLONIC EPILEPSY
     Route: 048
     Dates: start: 20041201, end: 20050412
  2. MICROPAKINE [Suspect]
     Indication: PETIT MAL EPILEPSY
  3. CORTICOIDS [Concomitant]
     Indication: IMMUNOSUPPRESSION
     Dates: start: 20050430
  4. BASILIXIMAB [Concomitant]
     Indication: IMMUNOSUPPRESSION
     Dates: start: 20050430
  5. TACROLIMUS [Concomitant]
     Indication: IMMUNOSUPPRESSION
     Dates: start: 20050430
  6. AZATHIOPRINE [Concomitant]
     Indication: IMMUNOSUPPRESSION
     Dates: start: 20050517

REACTIONS (20)
  - ABASIA [None]
  - ABDOMINAL PAIN [None]
  - ANOREXIA [None]
  - ANTITHROMBIN III DECREASED [None]
  - ASCITES [None]
  - ASTHENIA [None]
  - BIOPSY LIVER ABNORMAL [None]
  - DEHYDRATION [None]
  - DISSEMINATED INTRAVASCULAR COAGULATION [None]
  - ELECTROENCEPHALOGRAM ABNORMAL [None]
  - HEPATIC FAILURE [None]
  - HYPOTONIA [None]
  - LISTLESS [None]
  - LOSS OF CONSCIOUSNESS [None]
  - NERVOUS SYSTEM DISORDER [None]
  - NEUROLOGICAL SYMPTOM [None]
  - NUCLEAR MAGNETIC RESONANCE IMAGING BRAIN ABNORMAL [None]
  - SOPOR [None]
  - VOMITING [None]
  - WEIGHT DECREASED [None]
